FAERS Safety Report 8354071-0 (Version None)
Quarter: 2012Q2

REPORT INFORMATION
  Report Type: 
  Country: None (occurrence: None)
  Receive Date: 20120511
  Receipt Date: 20120427
  Transmission Date: 20120825
  Serious: Yes (Other)
  Sender: FDA-Public Use
  Company Number: DE-AMGEN-DEUSP2012028191

PATIENT
  Age: 13 Year
  Sex: Male

DRUGS (1)
  1. ENBREL [Suspect]
     Indication: JUVENILE ARTHRITIS
     Dosage: 50 MG, ONCE WEEKLY
     Dates: start: 20110415, end: 20120413

REACTIONS (2)
  - BRONCHOPNEUMONIA [None]
  - JUVENILE ARTHRITIS [None]
